FAERS Safety Report 18958886 (Version 55)
Quarter: 2025Q2

REPORT INFORMATION
  Report Type: Report from Study
  Country: CO (occurrence: CO)
  Receive Date: 20210302
  Receipt Date: 20250521
  Transmission Date: 20250716
  Serious: Yes (Life-Threatening, Hospitalization, Other)
  Sender: TAKEDA
  Company Number: CO-TAKEDA-CO202026627

PATIENT
  Age: 41 Year
  Sex: Female
  Weight: 98 kg

DRUGS (9)
  1. ICATIBANT [Suspect]
     Active Substance: ICATIBANT ACETATE
     Indication: Hereditary angioedema
     Dosage: 30 MILLIGRAM, TID
  2. ICATIBANT [Suspect]
     Active Substance: ICATIBANT ACETATE
  3. ICATIBANT [Suspect]
     Active Substance: ICATIBANT ACETATE
  4. ICATIBANT [Suspect]
     Active Substance: ICATIBANT ACETATE
  5. ICATIBANT [Suspect]
     Active Substance: ICATIBANT ACETATE
  6. TAKHZYRO [Suspect]
     Active Substance: LANADELUMAB-FLYO
     Indication: Angioedema
     Dosage: 300 MILLIGRAM, Q2WEEKS
  7. TAKHZYRO [Suspect]
     Active Substance: LANADELUMAB-FLYO
     Indication: Hereditary angioedema
     Dosage: 300 MILLIGRAM, 2/MONTH
  8. TAKHZYRO [Suspect]
     Active Substance: LANADELUMAB-FLYO
     Dosage: UNK, UNK, 2/MONTH
  9. TAKHZYRO [Suspect]
     Active Substance: LANADELUMAB-FLYO
     Dosage: 300 MILLIGRAM, Q2WEEKS
     Dates: end: 20240319

REACTIONS (59)
  - Suicide attempt [Unknown]
  - Pupil fixed [Not Recovered/Not Resolved]
  - Hallucination [Not Recovered/Not Resolved]
  - Loss of consciousness [Not Recovered/Not Resolved]
  - Cerebrovascular accident [Not Recovered/Not Resolved]
  - Urinary retention [Recovered/Resolved]
  - Pelvi-ureteric obstruction [Recovered/Resolved]
  - Suicidal ideation [Unknown]
  - Laryngeal oedema [Recovered/Resolved]
  - Speech disorder [Not Recovered/Not Resolved]
  - Amnesia [Not Recovered/Not Resolved]
  - Abnormal behaviour [Not Recovered/Not Resolved]
  - Thinking abnormal [Unknown]
  - Depressive symptom [Unknown]
  - Administration site oedema [Recovered/Resolved]
  - Administration site pruritus [Recovered/Resolved]
  - Mental disorder [Not Recovered/Not Resolved]
  - Disorientation [Not Recovered/Not Resolved]
  - Dyspnoea [Not Recovered/Not Resolved]
  - Chromatopsia [Unknown]
  - Grief reaction [Unknown]
  - Muscle tension dysphonia [Not Recovered/Not Resolved]
  - Muscle spasms [Not Recovered/Not Resolved]
  - Mobility decreased [Recovered/Resolved]
  - Rectal discharge [Not Recovered/Not Resolved]
  - Blister [Not Recovered/Not Resolved]
  - Discomfort [Not Recovered/Not Resolved]
  - Cough [Not Recovered/Not Resolved]
  - Malaise [Not Recovered/Not Resolved]
  - Ageusia [Unknown]
  - Anosmia [Unknown]
  - Dysphonia [Unknown]
  - Influenza [Not Recovered/Not Resolved]
  - Secretion discharge [Not Recovered/Not Resolved]
  - Fear [Unknown]
  - Influenza like illness [Not Recovered/Not Resolved]
  - Pain in extremity [Not Recovered/Not Resolved]
  - Gait inability [Not Recovered/Not Resolved]
  - Crying [Not Recovered/Not Resolved]
  - Depression [Not Recovered/Not Resolved]
  - Loss of personal independence in daily activities [Not Recovered/Not Resolved]
  - Psychological trauma [Unknown]
  - Pain [Unknown]
  - Depressed mood [Not Recovered/Not Resolved]
  - Apathy [Unknown]
  - Psychiatric symptom [Unknown]
  - Feeling abnormal [Unknown]
  - Blood pressure increased [Not Recovered/Not Resolved]
  - Somnolence [Not Recovered/Not Resolved]
  - Memory impairment [Unknown]
  - Inappropriate schedule of product administration [Unknown]
  - Off label use [Unknown]
  - Hereditary angioedema [Recovering/Resolving]
  - Rash macular [Not Recovered/Not Resolved]
  - Chest pain [Unknown]
  - Nasal congestion [Unknown]
  - Pruritus [Not Recovered/Not Resolved]
  - Rash [Not Recovered/Not Resolved]
  - Headache [Not Recovered/Not Resolved]

NARRATIVE: CASE EVENT DATE: 20210214
